FAERS Safety Report 25804682 (Version 1)
Quarter: 2025Q3

REPORT INFORMATION
  Report Type: Spontaneous
  Country: EU (occurrence: EU)
  Receive Date: 20250915
  Receipt Date: 20250915
  Transmission Date: 20251021
  Serious: Yes (Other)
  Sender: JOHNSON AND JOHNSON
  Company Number: None

PATIENT
  Age: 87 Year
  Sex: Female
  Weight: 55 kg

DRUGS (4)
  1. VERMOX [Suspect]
     Active Substance: MEBENDAZOLE
     Indication: Hepatic echinococciasis
     Route: 048
     Dates: start: 20240605, end: 20240709
  2. VERMOX [Suspect]
     Active Substance: MEBENDAZOLE
     Route: 048
     Dates: start: 20240709, end: 202408
  3. VERMOX [Suspect]
     Active Substance: MEBENDAZOLE
     Route: 048
     Dates: start: 202408, end: 20240814
  4. VERMOX [Suspect]
     Active Substance: MEBENDAZOLE
     Route: 048
     Dates: start: 20240924

REACTIONS (2)
  - Hepatic cytolysis [Recovered/Resolved]
  - Cross sensitivity reaction [Recovered/Resolved]

NARRATIVE: CASE EVENT DATE: 20240701
